FAERS Safety Report 17883645 (Version 1)
Quarter: 2020Q2

REPORT INFORMATION
  Report Type: Spontaneous
  Country: US (occurrence: US)
  Receive Date: 20200610
  Receipt Date: 20200610
  Transmission Date: 20200714
  Serious: Yes (Hospitalization)
  Sender: FDA-Public Use
  Company Number: None

PATIENT
  Age: 50 Year
  Sex: Female
  Weight: 156.9 kg

DRUGS (3)
  1. REMDESIVIR INJECTION [Suspect]
     Active Substance: REMDESIVIR
     Indication: COVID-19
     Route: 042
     Dates: start: 20200528, end: 20200601
  2. VANCOMYCIN [Concomitant]
     Active Substance: VANCOMYCIN
     Dates: start: 20200603
  3. TENOFOVIR [Concomitant]
     Active Substance: TENOFOVIR
     Dates: start: 20200528

REACTIONS (2)
  - Blood creatinine increased [None]
  - Hypotension [None]

NARRATIVE: CASE EVENT DATE: 20200604
